FAERS Safety Report 4979617-1 (Version None)
Quarter: 2006Q2

REPORT INFORMATION
  Report Type: 
  Country: None (occurrence: None)
  Receive Date: 20060418
  Receipt Date: 20060331
  Transmission Date: 20061013
  Serious: Yes (Life-Threatening, Hospitalization, Disabling)
  Sender: FDA-Public Use
  Company Number: GB200604000042

PATIENT
  Age: 73 Year
  Sex: Female

DRUGS (10)
  1. CYMBALTA [Suspect]
     Indication: DEPRESSION
     Dosage: 30 MG, ORAL
     Route: 048
     Dates: start: 20060308, end: 20060315
  2. FERROUS SULPHATE     (FERROUS SULFATE) [Concomitant]
  3. OMEPRAZOLE [Concomitant]
  4. FELODIPINE [Concomitant]
  5. CANDESARTAN (CANDESARTAN) [Concomitant]
  6. DIPYRIDAMOLE [Concomitant]
  7. ASPIRIN [Concomitant]
  8. LEVOTHYROXINE SODIUM [Concomitant]
  9. BEZAFIBRATE (BEZAFIBRATE) [Concomitant]
  10. TRIMETHOPRIM [Concomitant]

REACTIONS (6)
  - BRAIN OEDEMA [None]
  - CEREBROVASCULAR ACCIDENT [None]
  - CONFUSIONAL STATE [None]
  - CONVULSION [None]
  - HYPONATRAEMIA [None]
  - URINARY TRACT INFECTION [None]
